FAERS Safety Report 5568014-6 (Version None)
Quarter: 2007Q4

REPORT INFORMATION
  Report Type: 
  Country: None (occurrence: None)
  Receive Date: 20071216
  Receipt Date: 20071203
  Transmission Date: 20080405
  Serious: Yes (Other)
  Sender: FDA-Public Use
  Company Number: 021346

PATIENT
  Age: 20 Year
  Sex: Female

DRUGS (2)
  1. CLARAVIS [Suspect]
     Dosage: 10 MG, QD, ORAL; 40 MG, QD, ORAL
     Route: 048
     Dates: start: 20071030, end: 20071129
  2. CLARAVIS [Suspect]
     Dosage: 10 MG, QD, ORAL; 40 MG, QD, ORAL
     Route: 048
     Dates: start: 20071030, end: 20071129

REACTIONS (2)
  - DRUG EXPOSURE DURING PREGNANCY [None]
  - UNINTENDED PREGNANCY [None]
